FAERS Safety Report 8965471 (Version 1)
Quarter: 2012Q4

REPORT INFORMATION
  Report Type: 
  Country: US (occurrence: US)
  Receive Date: 20121213
  Receipt Date: 20121213
  Transmission Date: 20130627
  Serious: Yes (Hospitalization)
  Sender: FDA-Public Use
  Company Number: US-BRISTOL-MYERS SQUIBB COMPANY-17170309

PATIENT
  Age: 63 Year
  Sex: Female
  Weight: 58.96 kg

DRUGS (15)
  1. METFORMIN HCL [Suspect]
  2. PLAVIX [Suspect]
     Indication: CAROTID ARTERY OCCLUSION
     Dosage: 2004 OR 2005
  3. BABY ASPIRIN [Suspect]
  4. LOVASTATIN [Concomitant]
  5. CARDIZEM [Concomitant]
  6. TRIAMTERENE [Concomitant]
  7. POTASSIUM CHLORIDE [Concomitant]
  8. VENTOLIN [Concomitant]
  9. OMEPRAZOLE [Concomitant]
  10. BUSPIRONE [Concomitant]
  11. ALBUTEROL INHALER [Concomitant]
     Indication: CHRONIC OBSTRUCTIVE PULMONARY DISEASE
     Route: 055
  12. ATROVENT INHALER [Concomitant]
     Route: 055
  13. ULTRAM [Concomitant]
  14. SPIRIVA [Concomitant]
  15. LORATADINE [Concomitant]
     Indication: HYPERSENSITIVITY

REACTIONS (2)
  - Carotid artery occlusion [Unknown]
  - Contusion [Unknown]
